FAERS Safety Report 26202209 (Version 1)
Quarter: 2025Q4

REPORT INFORMATION
  Report Type: Spontaneous
  Country: EU (occurrence: EU)
  Receive Date: 20251226
  Receipt Date: 20251226
  Transmission Date: 20260118
  Serious: No
  Sender: BLUEPRINT MEDICINES
  Company Number: EU-Blueprint Medicines Corporation-2025-AER-02770

PATIENT
  Sex: Female

DRUGS (1)
  1. AVAPRITINIB [Suspect]
     Active Substance: AVAPRITINIB
     Indication: Product used for unknown indication
     Route: 065
     Dates: start: 202412

REACTIONS (1)
  - Tooth infection [Unknown]
